FAERS Safety Report 20987224 (Version 3)
Quarter: 2022Q3

REPORT INFORMATION
  Report Type: Report from Study
  Country: MX (occurrence: MX)
  Receive Date: 20220621
  Receipt Date: 20220812
  Transmission Date: 20221027
  Serious: Yes (Other)
  Sender: FDA-Public Use
  Company Number: MX-ALNYLAM PHARMACEUTICALS, INC.-ALN-2021-002114

PATIENT

DRUGS (9)
  1. VUTRISIRAN SODIUM [Suspect]
     Active Substance: VUTRISIRAN SODIUM
     Indication: Amyloidosis senile
     Dosage: 50 MILLIGRAM, Q6M
     Route: 058
     Dates: start: 20210712
  2. VITAMIN A [Concomitant]
     Active Substance: VITAMIN A
     Indication: Prophylaxis
     Dosage: 50000 INTERNATIONAL UNIT, WEEKLY
     Route: 048
     Dates: start: 20191202, end: 20200113
  3. SENOKOT [Concomitant]
     Active Substance: SENNOSIDES
     Indication: Constipation
     Dosage: 1 DOSAGE FORM (CAPSULE), PRN
     Route: 048
     Dates: start: 20210524, end: 20211112
  4. COVID-19 VACCINE NOS [Concomitant]
     Active Substance: COVID-19 VACCINE NOS
     Indication: Prophylaxis
     Dosage: 1 DOSAGE FORM (APPLICATION), SINGLE
     Route: 030
     Dates: start: 20210809, end: 20210809
  5. ACETAMINOPHEN [Concomitant]
     Active Substance: ACETAMINOPHEN
     Indication: Headache
     Dosage: 500 MILLIGRAM, BID
     Route: 048
     Dates: start: 20210809, end: 20210810
  6. ACETAMINOPHEN [Concomitant]
     Active Substance: ACETAMINOPHEN
     Dosage: 500 MILLIGRAM, PRN
     Route: 048
     Dates: start: 20210115
  7. CAPTOPRIL [Concomitant]
     Active Substance: CAPTOPRIL
     Indication: Hypertension
     Dosage: 25 MILLIGRAM, BID
     Route: 048
     Dates: start: 19870101, end: 20211117
  8. VIVIOPTAL [Concomitant]
     Indication: Supplementation therapy
     Dosage: 1 DOSAGE FORM, QOD
     Route: 048
     Dates: start: 20210113, end: 20210826
  9. Panclasa [Concomitant]
     Indication: Cholecystitis
     Dosage: 80/80 MILLIGRAM, QD
     Route: 048
     Dates: start: 20210503

REACTIONS (2)
  - Transaminases increased [Recovered/Resolved]
  - Non-alcoholic fatty liver [Not Recovered/Not Resolved]

NARRATIVE: CASE EVENT DATE: 20210826
